FAERS Safety Report 17939513 (Version 2)
Quarter: 2020Q4

REPORT INFORMATION
  Report Type: Report from Study
  Country: JP (occurrence: JP)
  Receive Date: 20200625
  Receipt Date: 20201123
  Transmission Date: 20210113
  Serious: Yes (Other)
  Sender: FDA-Public Use
  Company Number: JP-AMGEN-JPNCT2020100441

PATIENT
  Age: 77 Year
  Sex: Female

DRUGS (8)
  1. DARBEPOETIN ALFA [Suspect]
     Active Substance: DARBEPOETIN ALFA
     Indication: MYELODYSPLASTIC SYNDROME
     Dosage: 240 UG, 1X/WEEK
     Route: 058
     Dates: start: 20160120, end: 20160831
  2. PYDOXAL [Concomitant]
     Active Substance: PYRIDOXAL
     Indication: MYELODYSPLASTIC SYNDROME
     Dosage: 60 MG
     Route: 048
     Dates: start: 20151222, end: 20160825
  3. FAROM [Concomitant]
     Active Substance: FAROPENEM SODIUM
     Indication: INFECTION
     Dosage: 400 MG
     Route: 048
     Dates: start: 20160803, end: 20160809
  4. FAROM [Concomitant]
     Active Substance: FAROPENEM SODIUM
     Indication: INFECTION
  5. ZITHROMAC [Concomitant]
     Active Substance: AZITHROMYCIN DIHYDRATE
     Indication: INFECTION
     Dosage: 500 MG
     Route: 048
     Dates: end: 20160729
  6. ZITHROMAC [Concomitant]
     Active Substance: AZITHROMYCIN DIHYDRATE
     Indication: INFECTION
  7. LEVOFLOXACIN HEMIHYDRATE [Concomitant]
     Active Substance: LEVOFLOXACIN
     Indication: INFECTION
     Dosage: 250 MG
     Route: 048
     Dates: end: 20160525
  8. LEVOFLOXACIN HEMIHYDRATE [Concomitant]
     Active Substance: LEVOFLOXACIN
     Indication: INFECTION

REACTIONS (1)
  - Femoral neck fracture [Not Recovered/Not Resolved]

NARRATIVE: CASE EVENT DATE: 20160808
